FAERS Safety Report 6353327-0 (Version None)
Quarter: 2009Q3

REPORT INFORMATION
  Report Type: 
  Country: None (occurrence: None)
  Receive Date: 20090912
  Receipt Date: 20080725
  Transmission Date: 20100115
  Serious: No
  Sender: FDA-Public Use
  Company Number: US-BAUSCH-2008BL003266

PATIENT
  Age: 61 Year
  Sex: Female

DRUGS (12)
  1. ERYTHROCIN 1% [Suspect]
     Indication: CONJUNCTIVITIS INFECTIVE
     Route: 047
     Dates: start: 20080724
  2. INSULIN [Concomitant]
  3. METFORMIN HCL [Concomitant]
  4. SIMVASTATIN [Concomitant]
  5. COZAAR [Concomitant]
  6. MINITRAN [Concomitant]
  7. CATAPRES-TTS-2 /USA/ [Concomitant]
  8. AMLODIPINE [Concomitant]
  9. HYDROCHLOROTHIAZIDE [Concomitant]
  10. METOPROLOL TARTRATE [Concomitant]
  11. ASPIRIN [Concomitant]
  12. NITROGLYCERIN [Concomitant]

REACTIONS (3)
  - FEELING HOT [None]
  - FLUSHING [None]
  - NAUSEA [None]
